FAERS Safety Report 10012162 (Version 1)
Quarter: 2014Q1

REPORT INFORMATION
  Report Type: Report from Study
  Country: US (occurrence: US)
  Receive Date: 20140314
  Receipt Date: 20140314
  Transmission Date: 20141002
  Serious: Yes (Other)
  Sender: FDA-Public Use
  Company Number: US-GLAXOSMITHKLINE-A1064912A

PATIENT
  Age: 84 Year
  Sex: Female
  Weight: 62.3 kg

DRUGS (1)
  1. OMEGA-3-ACID ETHYL ESTERS [Suspect]
     Indication: ARRHYTHMIA PROPHYLAXIS
     Route: 048
     Dates: start: 20110215, end: 20110221

REACTIONS (1)
  - Haemorrhage [Unknown]
